FAERS Safety Report 8295055-0 (Version None)
Quarter: 2012Q2

REPORT INFORMATION
  Report Type: 
  Country: None (occurrence: None)
  Receive Date: 20120413
  Receipt Date: 20120329
  Transmission Date: 20120825
  Serious: Yes (Other)
  Sender: FDA-Public Use
  Company Number: 216854

PATIENT
  Age: 65 Year
  Sex: Male
  Weight: 126.6 kg

DRUGS (15)
  1. CLOPAMON (METOCLOPRAMIDE HYDROCHLORIDE) [Concomitant]
  2. ANDROCUR (CYPROTERONE ACETATE) [Concomitant]
  3. INNOHEP [Suspect]
     Indication: DEEP VEIN THROMBOSIS
     Dosage: 175 IU/KG (175 IU/KG, 1 IN 1 D), SUBCUTANEOUS, 175 IU/KG (175 IU/KG, 1 IN 1 D), SUBCUTANEOUS
     Route: 058
     Dates: start: 20120219, end: 20120314
  4. INNOHEP [Suspect]
     Indication: DEEP VEIN THROMBOSIS
     Dosage: 175 IU/KG (175 IU/KG, 1 IN 1 D), SUBCUTANEOUS, 175 IU/KG (175 IU/KG, 1 IN 1 D), SUBCUTANEOUS
     Route: 058
     Dates: start: 20111230, end: 20120217
  5. CELEBREX [Concomitant]
  6. TEMGESIC (BUPRENORPHINE) [Concomitant]
  7. CYMBALTA [Concomitant]
  8. MIST MORPHINE (MORPHINE) [Concomitant]
  9. LEUPROLIDE ACETATE [Concomitant]
  10. RIDAQ (HYDROCHLOROTHIAZIDE) [Concomitant]
  11. VALOID (CYCLIZINE HYDROCHLORIDE) (SUBLINGUAL SPRAY) [Concomitant]
  12. ADALAT [Concomitant]
  13. AUTRIN (PERIHEMIN) TABLET [Concomitant]
  14. TRAMACET (PARACETAMOL W/TRAMADOL) (TABLET) [Concomitant]
  15. ZOBONE (ZOLEDRONIC ACID) [Concomitant]

REACTIONS (5)
  - HAEMATOCRIT DECREASED [None]
  - TREATMENT NONCOMPLIANCE [None]
  - RED BLOOD CELL COUNT DECREASED [None]
  - CYSTITIS RADIATION [None]
  - HAEMOGLOBIN DECREASED [None]
